FAERS Safety Report 7663256-8 (Version None)
Quarter: 2011Q3

REPORT INFORMATION
  Report Type: 
  Country: None (occurrence: None)
  Receive Date: 20110805
  Receipt Date: 20100922
  Transmission Date: 20111222
  Serious: No
  Sender: FDA-Public Use
  Company Number: US-ABBOTT-10P-163-0672543-00

PATIENT
  Sex: Female

DRUGS (2)
  1. NIASPAN [Suspect]
     Indication: DYSLIPIDAEMIA
     Route: 048
     Dates: start: 20080101, end: 20100501
  2. SIMCOR [Suspect]
     Indication: DYSLIPIDAEMIA
     Dosage: 2 PO DAILY AT BEDTIME
     Route: 048
     Dates: start: 20100906

REACTIONS (3)
  - FLUSHING [None]
  - BACK PAIN [None]
  - FEELING HOT [None]
